FAERS Safety Report 22038046 (Version 1)
Quarter: 2023Q1

REPORT INFORMATION
  Report Type: Spontaneous
  Country: FR (occurrence: FR)
  Receive Date: 20230227
  Receipt Date: 20230227
  Transmission Date: 20230418
  Serious: Yes (Death)
  Sender: FDA-Public Use
  Company Number: FR-AFSSAPS-AVCN2023000045

PATIENT
  Age: 56 Year
  Sex: Male

DRUGS (7)
  1. MORPHINE [Suspect]
     Active Substance: MORPHINE
     Indication: Product used for unknown indication
     Dosage: UNK
     Route: 065
     Dates: end: 202212
  2. PAPAVERINE [Suspect]
     Active Substance: PAPAVERINE
     Indication: Product used for unknown indication
     Dosage: UNK
     Route: 065
     Dates: end: 202212
  3. 6-ACETYLMORPHINE [Suspect]
     Active Substance: 6-ACETYLMORPHINE
     Indication: Product used for unknown indication
     Dosage: UNK
     Route: 065
     Dates: end: 202212
  4. NOSCAPINE [Suspect]
     Active Substance: NOSCAPINE
     Indication: Product used for unknown indication
     Dosage: UNK
     Route: 065
     Dates: end: 202212
  5. ALCOHOL [Suspect]
     Active Substance: ALCOHOL
     Indication: Product used for unknown indication
     Dosage: UNK
     Route: 065
     Dates: end: 202212
  6. CANNABINOLIC ACID [Suspect]
     Active Substance: CANNABINOLIC ACID
     Indication: Product used for unknown indication
     Dosage: UNK
     Route: 065
     Dates: end: 202212
  7. DRONABINOL [Suspect]
     Active Substance: DRONABINOL
     Indication: Product used for unknown indication
     Dosage: UNK
     Route: 065
     Dates: end: 202212

REACTIONS (5)
  - Drug abuse [Fatal]
  - Asphyxia [Fatal]
  - Disturbance in attention [Fatal]
  - Respiratory depression [Fatal]
  - Balance disorder [Fatal]

NARRATIVE: CASE EVENT DATE: 20221201
